FAERS Safety Report 18528903 (Version 3)
Quarter: 2022Q2

REPORT INFORMATION
  Report Type: Spontaneous
  Country: US (occurrence: US)
  Receive Date: 20201120
  Receipt Date: 20220504
  Transmission Date: 20220721
  Serious: No
  Sender: FDA-Public Use
  Company Number: US-PFIZER INC-2019465494

PATIENT
  Age: 54 Year
  Sex: Male
  Weight: 146.96 kg

DRUGS (4)
  1. LYRICA [Suspect]
     Active Substance: PREGABALIN
     Indication: Diabetic neuropathy
     Dosage: 200 MG, 3X/DAY (TAKE 2 CAPSULES BY MOUTH 3 TIMES DAILY)
     Route: 048
     Dates: start: 201601
  2. LYRICA [Suspect]
     Active Substance: PREGABALIN
     Indication: Pain
  3. LYRICA [Suspect]
     Active Substance: PREGABALIN
     Indication: Neuropathy peripheral
  4. LYRICA [Suspect]
     Active Substance: PREGABALIN
     Indication: Type 2 diabetes mellitus

REACTIONS (1)
  - Vision blurred [Not Recovered/Not Resolved]
